FAERS Safety Report 25878040 (Version 2)
Quarter: 2025Q4

REPORT INFORMATION
  Report Type: Spontaneous
  Country: US (occurrence: US)
  Receive Date: 20251003
  Receipt Date: 20251218
  Transmission Date: 20260118
  Serious: No
  Sender: KARYOPHARM THERAPEUTICS
  Company Number: US-KARYOPHARM-2025KPT100788

PATIENT

DRUGS (9)
  1. SELINEXOR [Suspect]
     Active Substance: SELINEXOR
     Indication: Plasma cell myeloma
     Dosage: 20 MG TWICE WEEKLY
     Route: 048
     Dates: start: 20250918
  2. DEXAMETHASONE [Concomitant]
     Active Substance: DEXAMETHASONE
  3. LATANOPROST [Concomitant]
     Active Substance: LATANOPROST
  4. TIMOLOL MALEATE [Concomitant]
     Active Substance: TIMOLOL MALEATE
  5. PANTOPRAZOLE [Concomitant]
     Active Substance: PANTOPRAZOLE
  6. BRIMONIDINE TARTRATE;TIMOLOL [Concomitant]
  7. ACYCLOVIR ALPHARMA [ACICLOVIR] [Concomitant]
  8. ASPIRIN [Concomitant]
     Active Substance: ASPIRIN
  9. TRIAMTERENE AND HYDROCHLOROTHIAZIDE [Concomitant]
     Active Substance: HYDROCHLOROTHIAZIDE\TRIAMTERENE

REACTIONS (4)
  - Muscular weakness [Unknown]
  - Gait disturbance [Unknown]
  - Musculoskeletal stiffness [Unknown]
  - Fatigue [Unknown]

NARRATIVE: CASE EVENT DATE: 20250101
